FAERS Safety Report 13506741 (Version 1)
Quarter: 2017Q2

REPORT INFORMATION
  Report Type: Spontaneous
  Country: US (occurrence: US)
  Receive Date: 20170502
  Receipt Date: 20170502
  Transmission Date: 20170830
  Serious: No
  Sender: FDA-Public Use
  Company Number: US-ROCHE-1303181

PATIENT
  Sex: Male
  Weight: 89.5 kg

DRUGS (3)
  1. XELODA [Suspect]
     Active Substance: CAPECITABINE
     Dosage: 14 DAYS ON 7 DAYS OFF
     Route: 065
     Dates: start: 20131023
  2. AVASTIN [Suspect]
     Active Substance: BEVACIZUMAB
     Indication: COLON CANCER METASTATIC
     Route: 042
     Dates: start: 20130730
  3. XELODA [Suspect]
     Active Substance: CAPECITABINE
     Indication: COLON CANCER METASTATIC
     Route: 048
     Dates: start: 20130730

REACTIONS (4)
  - Epistaxis [Recovering/Resolving]
  - Cough [Unknown]
  - Epistaxis [Unknown]
  - Mouth haemorrhage [Unknown]
